FAERS Safety Report 19724973 (Version 1)
Quarter: 2021Q3

REPORT INFORMATION
  Report Type: Spontaneous
  Country: IL (occurrence: IL)
  Receive Date: 20210820
  Receipt Date: 20210820
  Transmission Date: 20211014
  Serious: Yes (Hospitalization)
  Sender: FDA-Public Use
  Company Number: IL-SUN PHARMACEUTICAL INDUSTRIES LTD-2021R1-308222

PATIENT
  Age: 58 Year
  Sex: Female

DRUGS (3)
  1. DOCETAXEL. [Suspect]
     Active Substance: DOCETAXEL
     Indication: INVASIVE DUCTAL BREAST CARCINOMA
     Dosage: 75 MG/M2 , UNK
     Route: 042
  2. CYCLOPHOSPHAMIDE. [Suspect]
     Active Substance: CYCLOPHOSPHAMIDE
     Indication: INVASIVE DUCTAL BREAST CARCINOMA
     Dosage: 600 MG/M2 , EVERY 3 WEEKS
     Route: 042
  3. PEGFILGRASTIM (PEGYLATED G?CSF) [Suspect]
     Active Substance: PEGFILGRASTIM
     Indication: INVASIVE DUCTAL BREAST CARCINOMA
     Dosage: 6 MG , UNK (DAY 3 OF EACH CYCLE)
     Route: 058

REACTIONS (1)
  - COVID-19 [Recovering/Resolving]
